FAERS Safety Report 5423598-3 (Version None)
Quarter: 2007Q3

REPORT INFORMATION
  Report Type: 
  Country: None (occurrence: None)
  Receive Date: 20070823
  Receipt Date: 20070814
  Transmission Date: 20080115
  Serious: Yes (Hospitalization)
  Sender: FDA-Public Use
  Company Number: FR-AVENTIS-200712609FR

PATIENT
  Age: 63 Year
  Sex: Male

DRUGS (1)
  1. RIFATER [Suspect]
     Indication: NON-HODGKIN'S LYMPHOMA
     Route: 048
     Dates: start: 20070425, end: 20070616

REACTIONS (1)
  - POLYARTHRITIS [None]
